FAERS Safety Report 9660413 (Version 3)
Quarter: 2014Q1

REPORT INFORMATION
  Report Type: Spontaneous
  Country: JP (occurrence: JP)
  Receive Date: 20131031
  Receipt Date: 20140207
  Transmission Date: 20141002
  Serious: Yes (Other)
  Sender: FDA-Public Use
  Company Number: JP-UCBSA-101696

PATIENT
  Age: 18 Year
  Sex: Male

DRUGS (3)
  1. E KEPPRA [Suspect]
     Indication: EPILEPSY
     Dosage: UNKNOWN DOSE
     Route: 048
  2. SODIUM VALPROATE [Suspect]
     Dosage: UNKNOWN DOSE
     Route: 048
  3. RISPERIDONE [Concomitant]
     Route: 048

REACTIONS (3)
  - Oral fibroma [Recovered/Resolved]
  - Gingival swelling [Recovered/Resolved]
  - Gingivitis [Recovered/Resolved]
